FAERS Safety Report 20060841 (Version 2)
Quarter: 2021Q4

REPORT INFORMATION
  Report Type: Spontaneous
  Country: US (occurrence: US)
  Receive Date: 20211112
  Receipt Date: 20211117
  Transmission Date: 20220303
  Serious: No
  Sender: FDA-Public Use
  Company Number: US-BAUSCH-BL-2021-036948

PATIENT
  Age: 68 Year
  Sex: Male

DRUGS (1)
  1. JUBLIA [Suspect]
     Active Substance: EFINACONAZOLE
     Indication: Fungal infection
     Dosage: 1 APPLICATION ONCE DAILY
     Route: 061
     Dates: start: 201801, end: 201912

REACTIONS (2)
  - Therapeutic product effect incomplete [Unknown]
  - Inability to afford medication [Unknown]
